FAERS Safety Report 5670141-X (Version None)
Quarter: 2008Q1

REPORT INFORMATION
  Report Type: 
  Country: None (occurrence: None)
  Receive Date: 20080312
  Receipt Date: 20080225
  Transmission Date: 20080703
  Serious: Yes (Other)
  Sender: FDA-Public Use
  Company Number: 2008S1003145

PATIENT
  Age: 12 Year
  Sex: Female

DRUGS (1)
  1. OXYBUTYNIN CHLORIDE [Suspect]
     Indication: STRESS URINARY INCONTINENCE
     Dosage: 3 MG; TWICE A DAY; ORAL
     Route: 048
     Dates: start: 20070701, end: 20080119

REACTIONS (1)
  - GRAND MAL CONVULSION [None]
